FAERS Safety Report 10101764 (Version 3)
Quarter: 2014Q2

REPORT INFORMATION
  Report Type: Spontaneous
  Country: UY (occurrence: UY)
  Receive Date: 20140424
  Receipt Date: 20140613
  Transmission Date: 20141212
  Serious: Yes (Hospitalization, Other)
  Sender: FDA-Public Use
  Company Number: UY-INCYTE CORPORATION-2014IN001060

PATIENT
  Sex: Male
  Weight: 60 kg

DRUGS (1)
  1. JAKAVI [Suspect]
     Indication: MYELOFIBROSIS
     Dosage: 20 MG, UNK
     Route: 048

REACTIONS (3)
  - Cardiac disorder [Unknown]
  - Splenomegaly [Unknown]
  - Anaemia [Unknown]
